FAERS Safety Report 8579767 (Version 2)
Quarter: 2012Q4

REPORT INFORMATION
  Report Type: Report from Study
  Country: GB (occurrence: GB)
  Receive Date: 20120525
  Receipt Date: 20120924
  Transmission Date: 20130627
  Serious: Yes (Death, Hospitalization)
  Sender: FDA-Public Use
  Company Number: GB-MPIJNJ-2012-01700

PATIENT

DRUGS (12)
  1. VELCADE [Suspect]
     Indication: MULTIPLE MYELOMA
     Dosage: UNK
     Route: 065
     Dates: start: 20090723, end: 20091026
  2. DEXAMETHASONE [Suspect]
     Indication: MULTIPLE MYELOMA
     Route: 065
  3. LANSOPRAZOLE [Concomitant]
     Dosage: 30 mg, qd
  4. FOLIC ACID [Concomitant]
     Dosage: 5 mg, UNK
  5. ACYCLOVIR                          /00587301/ [Concomitant]
     Dosage: 200 mg, bid
  6. COTRIMAXAZOLE [Concomitant]
     Dosage: 480 mg, qd
  7. ALFACALCIDOL [Concomitant]
     Dosage: 1 ug, qd
  8. CALCICHEW [Concomitant]
  9. ENOXAPARIN [Concomitant]
     Dosage: 20 mg, UNK
     Route: 058
  10. FLUCONAZOLE [Concomitant]
     Dosage: 50 mg, qd
  11. MOVICOL                            /01053601/ [Concomitant]
  12. DOXYCYCLINE [Concomitant]
     Dosage: 100 mg, bid

REACTIONS (2)
  - Diarrhoea [Recovered/Resolved with Sequelae]
  - Death [Fatal]
